FAERS Safety Report 21245910 (Version 4)
Quarter: 2023Q1

REPORT INFORMATION
  Report Type: Spontaneous
  Country: JP (occurrence: JP)
  Receive Date: 20220824
  Receipt Date: 20230321
  Transmission Date: 20230417
  Serious: Yes (Death, Other)
  Sender: FDA-Public Use
  Company Number: JP-MSD-M2022-33481

PATIENT
  Age: 51 Year
  Sex: Female
  Weight: 49.5 kg

DRUGS (5)
  1. KEYTRUDA [Suspect]
     Active Substance: PEMBROLIZUMAB
     Indication: Uterine cancer
     Dosage: 200 MILLIGRAM, Q3W
     Route: 041
     Dates: start: 20220802, end: 20220802
  2. LENVATINIB MESYLATE [Suspect]
     Active Substance: LENVATINIB MESYLATE
     Indication: Uterine cancer
     Dosage: 20 MILLIGRAM, QD
     Route: 048
     Dates: start: 20220802, end: 20220814
  3. LYRICA [Concomitant]
     Active Substance: PREGABALIN
     Indication: Hypoaesthesia
     Dosage: 4 TABLETS PER DAY
     Route: 048
     Dates: start: 20220422
  4. CALONAL [Concomitant]
     Active Substance: ACETAMINOPHEN
     Indication: Pain
     Dosage: UNK
     Route: 048
     Dates: start: 20220802
  5. URSO [Concomitant]
     Active Substance: URSODIOL
     Dosage: QD, 5 TABLETS PER DAY
     Route: 048
     Dates: start: 20220413

REACTIONS (6)
  - Cardiac failure acute [Fatal]
  - Immune-mediated myocarditis [Unknown]
  - Malaise [Unknown]
  - Diarrhoea [Unknown]
  - Dysphonia [Unknown]
  - Dyspnoea [Unknown]

NARRATIVE: CASE EVENT DATE: 20220808
